FAERS Safety Report 6996645-5 (Version None)
Quarter: 2010Q3

REPORT INFORMATION
  Report Type: 
  Country: None (occurrence: None)
  Receive Date: 20100918
  Receipt Date: 20090601
  Transmission Date: 20110219
  Serious: No
  Sender: FDA-Public Use
  Company Number: US-WYE-H09550809

PATIENT
  Age: 32 Year
  Sex: Female

DRUGS (4)
  1. EFFEXOR [Suspect]
     Indication: POSTPARTUM DEPRESSION
     Dosage: UNKNOWN
     Route: 048
     Dates: start: 20060101, end: 20090521
  2. EFFEXOR [Suspect]
     Indication: FIBROMYALGIA
     Dosage: UNKNOWN
     Route: 048
     Dates: start: 20090524
  3. SAVELLA [Suspect]
     Indication: FIBROMYALGIA
     Route: 048
     Dates: start: 20090522, end: 20090522
  4. SAVELLA [Suspect]
     Route: 048
     Dates: start: 20090523, end: 20090524

REACTIONS (12)
  - BACK PAIN [None]
  - CHEST PAIN [None]
  - DRUG WITHDRAWAL SYNDROME [None]
  - DYSPNOEA [None]
  - FATIGUE [None]
  - FLANK PAIN [None]
  - GASTROOESOPHAGEAL REFLUX DISEASE [None]
  - HEADACHE [None]
  - MOOD SWINGS [None]
  - NAUSEA [None]
  - PALPITATIONS [None]
  - TREMOR [None]
